FAERS Safety Report 24168392 (Version 4)
Quarter: 2024Q4

REPORT INFORMATION
  Report Type: Report from Study
  Country: AR (occurrence: AR)
  Receive Date: 20240802
  Receipt Date: 20241210
  Transmission Date: 20250115
  Serious: Yes (Other)
  Sender: GLAXOSMITHKLINE
  Company Number: AR-GLAXOSMITHKLINE-AR2024AMR073976

PATIENT

DRUGS (1)
  1. MEPOLIZUMAB [Suspect]
     Active Substance: MEPOLIZUMAB
     Indication: Asthma
     Dosage: 100 MG, MO
     Dates: start: 20240611

REACTIONS (16)
  - Diabetes mellitus [Unknown]
  - Nasopharyngitis [Recovered/Resolved]
  - Productive cough [Recovered/Resolved]
  - Dyspnoea [Not Recovered/Not Resolved]
  - Catarrh [Recovered/Resolved]
  - Dysphonia [Not Recovered/Not Resolved]
  - Chronic obstructive pulmonary disease [Unknown]
  - Back pain [Not Recovered/Not Resolved]
  - Agitation [Recovered/Resolved]
  - Vocal cord disorder [Unknown]
  - Condition aggravated [Unknown]
  - Illness [Unknown]
  - Malaise [Not Recovered/Not Resolved]
  - Therapeutic response unexpected [Unknown]
  - Product storage error [Unknown]
  - Product use issue [Unknown]

NARRATIVE: CASE EVENT DATE: 20240611
